FAERS Safety Report 8306146-X (Version None)
Quarter: 2012Q2

REPORT INFORMATION
  Report Type: 
  Country: None (occurrence: None)
  Receive Date: 20120423
  Receipt Date: 20120416
  Transmission Date: 20120825
  Serious: Yes (Hospitalization, Other)
  Sender: FDA-Public Use
  Company Number: US-ELI_LILLY_AND_COMPANY-US201204006040

PATIENT
  Sex: Female

DRUGS (12)
  1. PEPCID [Concomitant]
  2. COLACE [Concomitant]
  3. PERCOCET [Concomitant]
  4. LOVENOX [Concomitant]
  5. FORTEO [Suspect]
     Dosage: 20 UG, QD
  6. VITAMIN D [Concomitant]
  7. THIAMINE HCL [Concomitant]
  8. CALCIUM [Concomitant]
  9. VITAMIN B-12 [Concomitant]
  10. FORTEO [Suspect]
     Indication: OSTEOPOROSIS
     Dosage: 20 UG, QD
     Dates: start: 20110801
  11. LISINOPRIL [Concomitant]
  12. MULTI-VITAMINS [Concomitant]

REACTIONS (4)
  - ANKLE FRACTURE [None]
  - FALL [None]
  - SYNCOPE [None]
  - LOWER LIMB FRACTURE [None]
